FAERS Safety Report 7166204-2 (Version None)
Quarter: 2010Q4

REPORT INFORMATION
  Report Type: 
  Country: None (occurrence: None)
  Receive Date: 20101202
  Receipt Date: 20101116
  Transmission Date: 20110411
  Serious: Yes (Death)
  Sender: FDA-Public Use
  Company Number: 2010005030

PATIENT
  Age: 59 Year
  Sex: Female

DRUGS (11)
  1. ERLOTINIB HYDROCHLORIDE [Suspect]
     Indication: NON-SMALL CELL LUNG CANCER
     Dosage: (150 MG,ONCE PER DAY), ORAL
     Route: 048
     Dates: start: 20080708, end: 20080806
  2. COMBIFLEX [Concomitant]
  3. SOLONDO [Concomitant]
  4. RHINATHIOL(CARBOCISTEINE) [Concomitant]
  5. MUCOPECT(AM#ROXOL HYDROCHLORIDE) [Concomitant]
  6. MEDILAC-S(MEDILAC-S) [Concomitant]
  7. HEMOQ [Concomitant]
  8. MYPOL [Concomitant]
  9. POTASSIUM CHLORIDE [Concomitant]
  10. TOLPERISONE HYDROCHLORIDE (TOLPERISONE HYDROCHLORIDE) [Concomitant]
  11. TRAMADOL HCL [Concomitant]

REACTIONS (2)
  - ASTHENIA [None]
  - METASTASES TO LIVER [None]
